FAERS Safety Report 6965051-1 (Version None)
Quarter: 2010Q3

REPORT INFORMATION
  Report Type: 
  Country: None (occurrence: None)
  Receive Date: 20100903
  Receipt Date: 20100709
  Transmission Date: 20110219
  Serious: No
  Sender: FDA-Public Use
  Company Number: US-BAYER-201028002NA

PATIENT
  Sex: Male

DRUGS (2)
  1. KOGENATE FS [Suspect]
     Indication: PROPHYLAXIS
     Dosage: 499
     Route: 042
     Dates: start: 20090701
  2. KOGENATE FS [Suspect]
     Dosage: 500
     Route: 042
     Dates: start: 20090701

REACTIONS (2)
  - BODY TEMPERATURE INCREASED [None]
  - DEVICE RELATED INFECTION [None]
